FAERS Safety Report 11264163 (Version 1)
Quarter: 2015Q3

REPORT INFORMATION
  Report Type: Spontaneous
  Country: US (occurrence: US)
  Receive Date: 20150713
  Receipt Date: 20150713
  Transmission Date: 20151125
  Serious: No
  Sender: FDA-Public Use
  Company Number: US-JNJFOC-20150607720

PATIENT
  Sex: Female
  Weight: 48.99 kg

DRUGS (9)
  1. SPIRONOLACTONE. [Concomitant]
     Active Substance: SPIRONOLACTONE
     Indication: ADVERSE DRUG REACTION
  2. TESTOSTERONE CREAM [Concomitant]
     Indication: HORMONE REPLACEMENT THERAPY
     Route: 065
  3. RIZATRIPTAN. [Concomitant]
     Active Substance: RIZATRIPTAN
     Indication: MIGRAINE
     Route: 065
  4. TOPAMAX [Suspect]
     Active Substance: TOPIRAMATE
     Indication: MIGRAINE PROPHYLAXIS
     Dosage: EVERY 48 HOURS/PO-ORAL
     Route: 065
     Dates: start: 2001
  5. NITROFURANTOIN. [Concomitant]
     Active Substance: NITROFURANTOIN
     Indication: CYSTITIS
  6. DURAGESIC [Suspect]
     Active Substance: FENTANYL
     Indication: PELVIC PAIN
     Dosage: EVERY 48 HOURS
     Route: 062
  7. ESTROGEN [Concomitant]
     Active Substance: ESTRONE\SUS SCROFA OVARY
     Indication: HORMONE REPLACEMENT THERAPY
     Route: 065
  8. ANASTROZOLE. [Concomitant]
     Active Substance: ANASTROZOLE
     Indication: ADVERSE DRUG REACTION
  9. DURAGESIC [Suspect]
     Active Substance: FENTANYL
     Indication: PELVIC PAIN
     Dosage: EVERY 48 HOURS
     Route: 062
     Dates: end: 2006

REACTIONS (1)
  - Migraine [Not Recovered/Not Resolved]

NARRATIVE: CASE EVENT DATE: 2001
